FAERS Safety Report 8595782 (Version 5)
Quarter: 2014Q1

REPORT INFORMATION
  Report Type: Spontaneous
  Country: US (occurrence: US)
  Receive Date: 20120605
  Receipt Date: 20140127
  Transmission Date: 20141002
  Serious: Yes (Hospitalization, Other)
  Sender: FDA-Public Use
  Company Number: US-ASTRAZENECA-2012SE35625

PATIENT
  Age: 54 Year
  Sex: Female

DRUGS (15)
  1. NEXIUM [Suspect]
     Indication: GASTROOESOPHAGEAL REFLUX DISEASE
     Route: 048
     Dates: start: 2005
  2. NEXIUM [Suspect]
     Indication: GASTROOESOPHAGEAL REFLUX DISEASE
     Route: 048
     Dates: start: 20101210
  3. NEXIUM [Suspect]
     Indication: GASTROOESOPHAGEAL REFLUX DISEASE
     Route: 048
     Dates: start: 20110110
  4. PRILOSEC [Suspect]
     Route: 048
  5. TAGAMET [Concomitant]
  6. ZOCOR [Concomitant]
     Indication: BLOOD CHOLESTEROL
  7. LISINOPRIL [Concomitant]
     Indication: HYPERTENSION
  8. SINGULAIR [Concomitant]
     Indication: ASTHMA
  9. SINGULAIR [Concomitant]
     Indication: MULTIPLE ALLERGIES
  10. ZYRTEC [Concomitant]
     Indication: ASTHMA
  11. ZYRTEC [Concomitant]
     Indication: MULTIPLE ALLERGIES
  12. PROZAC [Concomitant]
     Indication: DEPRESSION
     Dates: start: 20110922
  13. ASPIRIN [Concomitant]
  14. METOPROLOL [Concomitant]
     Dates: start: 20110922
  15. PREMARIN [Concomitant]
     Dates: start: 20110922

REACTIONS (7)
  - Ankle fracture [Unknown]
  - Appendicitis perforated [Unknown]
  - Joint injury [Unknown]
  - Joint dislocation [Unknown]
  - Fall [Unknown]
  - Osteoporosis [Unknown]
  - Ear infection [Unknown]
